FAERS Safety Report 16644629 (Version 1)
Quarter: 2019Q3

REPORT INFORMATION
  Report Type: Spontaneous
  Country: US (occurrence: US)
  Receive Date: 20190729
  Receipt Date: 20190729
  Transmission Date: 20191004
  Serious: Yes (Other)
  Sender: FDA-Public Use
  Company Number: US-MYLANLABS-2019M1069937

PATIENT
  Sex: Male

DRUGS (1)
  1. LEVETIRACETAM TABLETS, USP [Suspect]
     Active Substance: LEVETIRACETAM
     Indication: PRODUCT USED FOR UNKNOWN INDICATION
     Dosage: UNK
     Route: 065

REACTIONS (5)
  - Seizure [Unknown]
  - Pain [Unknown]
  - Asthenia [Unknown]
  - Drug ineffective [Unknown]
  - Amnesia [Unknown]
